FAERS Safety Report 11676853 (Version 1)
Quarter: 2015Q4

REPORT INFORMATION
  Report Type: Report from Study
  Country: US (occurrence: None)
  Receive Date: 20151028
  Receipt Date: 20151028
  Transmission Date: 20160304
  Serious: No
  Sender: FDA-Public Use
  Company Number: ADR-2015-01425

PATIENT
  Age: 68 Year
  Sex: Male

DRUGS (2)
  1. COMPOUNDED BACLOFEN INTRATHECAL 342 MCG/ML [Suspect]
     Active Substance: BACLOFEN
     Indication: CHEMOTHERAPY
     Dosage: 375.78 MCG/DAY
  2. MORPHINE INTRATHECAL 2.5 MG/ML [Suspect]
     Active Substance: MORPHINE
     Indication: CHEMOTHERAPY
     Dosage: 2.7469 MG/DAY

REACTIONS (4)
  - Adverse drug reaction [None]
  - Somnolence [None]
  - Hallucination [None]
  - Mental status changes [None]
